FAERS Safety Report 7902547-X (Version None)
Quarter: 2011Q4

REPORT INFORMATION
  Report Type: 
  Country: None (occurrence: None)
  Receive Date: 20111108
  Receipt Date: 20111028
  Transmission Date: 20120403
  Serious: Yes (Life-Threatening, Hospitalization)
  Sender: FDA-Public Use
  Company Number: FR-NAPPMUNDI-GBR-2011-0009028

PATIENT
  Sex: Male

DRUGS (12)
  1. CORDARONE [Concomitant]
  2. BISOPROLOL FUMARATE [Concomitant]
     Dosage: 25 MG, UNK
  3. OXYCONTIN LP 20 MG, COMPRIME PELLICULE A LIBERATION PROLONGEE [Suspect]
     Indication: PAIN
     Dosage: 20 MG, BID
     Route: 048
     Dates: start: 20111026, end: 20111028
  4. ACETAMINOPHEN [Concomitant]
  5. PLAVIX [Concomitant]
  6. PANTOPRAZOLE [Concomitant]
  7. LYRICA [Concomitant]
     Dosage: 150 MG, BID
     Dates: start: 20111011
  8. CLONAZEPAM [Concomitant]
  9. LYRICA [Concomitant]
     Indication: AMPUTATION STUMP PAIN
     Dosage: 200 MG, BID
     Dates: start: 20111018
  10. PERMIXON                           /00833501/ [Concomitant]
     Dosage: 160 MG, UNK
  11. LYRICA [Concomitant]
     Dosage: 125 MG, BID
  12. ASPIRIN [Concomitant]

REACTIONS (2)
  - OVERDOSE [None]
  - PNEUMONIA ASPIRATION [None]
